FAERS Safety Report 6571972-4 (Version None)
Quarter: 2010Q1

REPORT INFORMATION
  Report Type: 
  Country: None (occurrence: None)
  Receive Date: 20100205
  Receipt Date: 20100126
  Transmission Date: 20100710
  Serious: Yes (Hospitalization)
  Sender: FDA-Public Use
  Company Number: US-PFIZER INC-2010002508

PATIENT
  Sex: Female
  Weight: 47.627 kg

DRUGS (8)
  1. CLINDAMYCIN HCL [Suspect]
     Indication: DENTAL IMPLANTATION
     Dosage: 150 MG, 4X/DAY
     Route: 048
     Dates: start: 20091214
  2. TYLENOL W/ CODEINE NO. 3 [Concomitant]
     Indication: ORAL SURGERY
     Dosage: UNK
  3. PERIDEX [Concomitant]
     Indication: ORAL SURGERY
     Dosage: UNK
  4. AMLODIPINE BESILATE [Concomitant]
     Dosage: 2.5 MG, UNK
  5. ATENOLOL [Concomitant]
     Dosage: UNK
  6. LEVOTHYROXINE SODIUM [Concomitant]
     Dosage: UNK
  7. PREMARIN [Concomitant]
     Dosage: UNK
  8. PRANDIN [Concomitant]
     Dosage: UNK

REACTIONS (5)
  - BLOOD GLUCOSE INCREASED [None]
  - CAUSTIC INJURY [None]
  - DYSPHONIA [None]
  - LUNG DISORDER [None]
  - THROAT IRRITATION [None]
